FAERS Safety Report 10182578 (Version 1)
Quarter: 2014Q2

REPORT INFORMATION
  Report Type: Spontaneous
  Country: US (occurrence: None)
  Receive Date: 20140516
  Receipt Date: 20140516
  Transmission Date: 20141212
  Serious: Yes (Death)
  Sender: FDA-Public Use
  Company Number: INS201405-000070

PATIENT
  Age: 70 Year
  Sex: Male

DRUGS (1)
  1. SUBSYS SUBLINGUAL SPRAY (FENTANYL) [Suspect]

REACTIONS (1)
  - Death [None]
